FAERS Safety Report 9468406 (Version 3)
Quarter: 2013Q4

REPORT INFORMATION
  Report Type: Report from Study
  Country: JP (occurrence: JP)
  Receive Date: 20130821
  Receipt Date: 20131009
  Transmission Date: 20140711
  Serious: Yes (Hospitalization)
  Sender: FDA-Public Use
  Company Number: PHHO2013JP010874

PATIENT
  Age: 64 Year
  Sex: Male
  Weight: 64 kg

DRUGS (3)
  1. AMN107 [Suspect]
     Indication: CHRONIC MYELOID LEUKAEMIA
     Dosage: 600 MG DAILY
     Route: 048
     Dates: start: 20120615, end: 20130814
  2. FAMOTIDINE DCI [Concomitant]
     Indication: DUODENAL ULCER
     Dosage: 20 NG, UNK
     Route: 048
  3. GLIVEC [Concomitant]
     Dosage: 400 MG DAILY
     Dates: start: 20040913

REACTIONS (1)
  - Angina unstable [Recovering/Resolving]
